FAERS Safety Report 9148867 (Version 2)
Quarter: 2013Q2

REPORT INFORMATION
  Report Type: Spontaneous
  Country: GR (occurrence: None)
  Receive Date: 20130304
  Receipt Date: 20130409
  Transmission Date: 20140414
  Serious: Yes (Death)
  Sender: FDA-Public Use
  Company Number: TPA2013A01744

PATIENT
  Age: 82 Year
  Sex: Female

DRUGS (4)
  1. ADENURIC (FEBUXOSTAT) [Suspect]
     Indication: HYPERURICAEMIA
     Dosage: (80 MG, 1 IN 1D)
     Route: 048
     Dates: start: 201211, end: 20130129
  2. ATACAND PLUS (CANDESARTAN CILEXETIL, HYDROCHLOROTHIAZIDE) [Concomitant]
  3. PREZOLON (PREDNISOLONE) [Concomitant]
  4. T4 (LEVOTHYROXINE SODIUM) [Concomitant]

REACTIONS (5)
  - Toxic epidermal necrolysis [None]
  - Hypotension [None]
  - Septic shock [None]
  - Acute respiratory failure [None]
  - Renal failure acute [None]
